FAERS Safety Report 9008114 (Version 1)
Quarter: 2012Q4

REPORT INFORMATION
  Report Type: Spontaneous
  Country: GB (occurrence: None)
  Receive Date: 20121227
  Receipt Date: 20121227
  Transmission Date: 20130627
  Serious: Yes (Other)
  Sender: FDA-Public Use
  Company Number: GER/UKI/12/0027110

PATIENT
  Age: 48 Year
  Sex: Female

DRUGS (6)
  1. OLANZAPINE (OLANZAPINE) [Suspect]
     Indication: DRUG USE FOR UNKNOWN INDICATION
     Dates: end: 201106
  2. QUETIAPINE (QUETIAPINE) (QUETIAPINE) [Suspect]
     Indication: PARANOID PSYCHOSIS
     Route: 048
     Dates: start: 201108, end: 201112
  3. RISPERIDONE (RISPERIDONE) [Suspect]
     Indication: PARANOID PSYCHOSIS
     Route: 048
     Dates: start: 201201, end: 201207
  4. CLOZARIL (CLOZAPINE) [Suspect]
     Indication: SCHIZOPHRENIA
     Route: 048
     Dates: start: 20120820
  5. MOVICOL (POLYETHYL.GLYC.W/POTAS. CHLOR./SOD.BICARB. [Concomitant]
  6. SOLIFENACIN (SOLIFENACIN) [Concomitant]

REACTIONS (9)
  - Demyelination [None]
  - Gait disturbance [None]
  - Multiple sclerosis [None]
  - Paraesthesia [None]
  - Posture abnormal [None]
  - Somnolence [None]
  - Fall [None]
  - Muscle rigidity [None]
  - Asthenia [None]
